FAERS Safety Report 20023715 (Version 3)
Quarter: 2022Q1

REPORT INFORMATION
  Report Type: Spontaneous
  Country: US (occurrence: US)
  Receive Date: 20211102
  Receipt Date: 20220209
  Transmission Date: 20220423
  Serious: Yes (Life-Threatening, Hospitalization, Other)
  Sender: FDA-Public Use
  Company Number: US-SANOFI-00833205

PATIENT
  Age: 62 Year
  Sex: Male
  Weight: 48.9 kg

DRUGS (8)
  1. DUPIXENT [Suspect]
     Active Substance: DUPILUMAB
     Indication: Asthma
     Dosage: 300 MG, Q4W
     Route: 058
     Dates: start: 202104, end: 202109
  2. ADVIL [Concomitant]
     Active Substance: IBUPROFEN
  3. METFORMIN [Concomitant]
     Active Substance: METFORMIN HYDROCHLORIDE
  4. SPIRIVA [Concomitant]
     Active Substance: TIOTROPIUM BROMIDE MONOHYDRATE
  5. AZITHROMYCIN [Concomitant]
     Active Substance: AZITHROMYCIN
  6. TRIVEDON [Concomitant]
  7. BENRALIZUMAB [Concomitant]
     Active Substance: BENRALIZUMAB
  8. FASENRA [Concomitant]
     Active Substance: BENRALIZUMAB

REACTIONS (13)
  - Acute respiratory distress syndrome [Unknown]
  - Pyrexia [Unknown]
  - Arthritis [Unknown]
  - Myalgia [Unknown]
  - Respiratory failure [Unknown]
  - Weight decreased [Unknown]
  - Eosinophil count abnormal [Unknown]
  - Blood culture positive [Unknown]
  - Adverse reaction [Unknown]
  - Arthralgia [Unknown]
  - Positive airway pressure therapy [Unknown]
  - Eosinophilic pneumonia [Recovered/Resolved]
  - Product use issue [Unknown]

NARRATIVE: CASE EVENT DATE: 20210921
